FAERS Safety Report 8836076 (Version 1)
Quarter: 2012Q4

REPORT INFORMATION
  Report Type: 
  Country: US (occurrence: US)
  Receive Date: 20121011
  Receipt Date: 20121011
  Transmission Date: 20130627
  Serious: Yes (Hospitalization)
  Sender: FDA-Public Use
  Company Number: US-JNJFOC-20121003108

PATIENT
  Sex: Female
  Weight: 49.9 kg

DRUGS (2)
  1. TYLENOL/CODEINE [Suspect]
     Indication: PAIN
     Route: 048
     Dates: start: 201207, end: 20120930
  2. IBUPROFEN [Suspect]
     Indication: PRODUCT USED FOR UNKNOWN INDICATION
     Route: 048
     Dates: start: 201205, end: 201209

REACTIONS (2)
  - Renal failure acute [Not Recovered/Not Resolved]
  - Enzyme level increased [Unknown]
